FAERS Safety Report 5120945-7 (Version None)
Quarter: 2006Q4

REPORT INFORMATION
  Report Type: 
  Country: None (occurrence: None)
  Receive Date: 20061005
  Receipt Date: 20060927
  Transmission Date: 20070319
  Serious: Yes (Other)
  Sender: FDA-Public Use
  Company Number: CA-ROCHE-465032

PATIENT
  Age: 52 Year
  Sex: Female

DRUGS (3)
  1. RIVOTRIL [Suspect]
     Indication: DRUG USE FOR UNKNOWN INDICATION
     Route: 065
  2. TRAZODONE HCL [Suspect]
     Indication: DRUG USE FOR UNKNOWN INDICATION
     Route: 065
  3. CYCLOBENZAPRINE [Suspect]
     Indication: DRUG USE FOR UNKNOWN INDICATION
     Route: 065

REACTIONS (6)
  - DRUG ABUSER [None]
  - DYSARTHRIA [None]
  - HALLUCINATION [None]
  - MEDICATION ERROR [None]
  - NAUSEA [None]
  - TACHYCARDIA [None]
